FAERS Safety Report 8481606-X (Version None)
Quarter: 2012Q3

REPORT INFORMATION
  Report Type: 
  Country: None (occurrence: None)
  Receive Date: 20120702
  Receipt Date: 20120626
  Transmission Date: 20120928
  Serious: Yes (Other)
  Sender: FDA-Public Use
  Company Number: US-PFIZER INC-2010094806

PATIENT
  Sex: Female
  Weight: 113 kg

DRUGS (4)
  1. CYMBALTA [Concomitant]
     Dosage: 60 MG, DAILY
  2. GABAPENTIN [Concomitant]
     Indication: COMPLEX REGIONAL PAIN SYNDROME
     Dosage: 1200 MG, 3X/DAY
     Dates: start: 20060101
  3. LOPID [Suspect]
     Indication: COMPLEX REGIONAL PAIN SYNDROME
     Dosage: UNK
     Dates: start: 20090907, end: 20090919
  4. NORCO [Concomitant]
     Indication: PAIN
     Dosage: [HYDROCODONE BITARTRATE 10]/[ACETAMINOPHEN 325 MG]
     Route: 048

REACTIONS (22)
  - ABDOMINAL PAIN UPPER [None]
  - ACCIDENTAL OVERDOSE [None]
  - DIARRHOEA [None]
  - VISION BLURRED [None]
  - DYSGEUSIA [None]
  - HAEMORRHAGIC DIATHESIS [None]
  - HEADACHE [None]
  - ABDOMINAL DISCOMFORT [None]
  - THINKING ABNORMAL [None]
  - CONTUSION [None]
  - WRONG DRUG ADMINISTERED [None]
  - MALAISE [None]
  - MUSCULAR WEAKNESS [None]
  - OROPHARYNGEAL PAIN [None]
  - COUGH [None]
  - DRUG DISPENSING ERROR [None]
  - PYREXIA [None]
  - DIZZINESS [None]
  - DYSSTASIA [None]
  - DRY MOUTH [None]
  - ASTHENIA [None]
  - DYSPNOEA [None]
